FAERS Safety Report 5786884-3 (Version None)
Quarter: 2008Q2

REPORT INFORMATION
  Report Type: 
  Country: None (occurrence: None)
  Receive Date: 20080624
  Receipt Date: 20080624
  Transmission Date: 20081010
  Serious: Yes (Life-Threatening, Other)
  Sender: FDA-Public Use
  Company Number: None

PATIENT
  Age: 40 Year
  Sex: Female
  Weight: 56.6996 kg

DRUGS (1)
  1. ZANTAC 150 [Suspect]
     Indication: GASTROOESOPHAGEAL REFLUX DISEASE
     Dosage: TWICE 2 OR 3 WEEKLY OTHER
     Route: 050
     Dates: start: 20060310, end: 20080623

REACTIONS (2)
  - AMPHETAMINES POSITIVE [None]
  - LABORATORY TEST INTERFERENCE [None]
